FAERS Safety Report 6134233-3 (Version None)
Quarter: 2009Q1

REPORT INFORMATION
  Report Type: 
  Country: None (occurrence: None)
  Receive Date: 20090326
  Receipt Date: 20090312
  Transmission Date: 20090719
  Serious: Yes (Death, Other)
  Sender: FDA-Public Use
  Company Number: IT-GENENTECH-279638

PATIENT
  Age: 86 Year
  Sex: Female

DRUGS (5)
  1. ACTIVASE [Suspect]
     Indication: CARDIO-RESPIRATORY ARREST
     Dosage: 100 MG, UNK
     Route: 042
  2. ACTIVASE [Suspect]
     Indication: PULMONARY EMBOLISM
  3. UNFRACTIONATED HEPARIN [Suspect]
     Indication: CARDIO-RESPIRATORY ARREST
     Dosage: 20000 IU, QD
  4. UNFRACTIONATED HEPARIN [Suspect]
     Indication: PULMONARY EMBOLISM
  5. DOPAMINE HCL [Suspect]
     Indication: DRUG USE FOR UNKNOWN INDICATION
     Dosage: 12 A?GKGMN, UNK

REACTIONS (3)
  - DEATH [None]
  - GRAND MAL CONVULSION [None]
  - PNEUMONIA [None]
